FAERS Safety Report 4773965-6 (Version None)
Quarter: 2005Q3

REPORT INFORMATION
  Report Type: 
  Country: None (occurrence: None)
  Receive Date: 20050919
  Receipt Date: 20050902
  Transmission Date: 20060218
  Serious: Yes (Death, Hospitalization, Other)
  Sender: FDA-Public Use
  Company Number: 200511343BWH

PATIENT
  Age: 69 Year
  Sex: Female

DRUGS (5)
  1. CIPRO [Suspect]
     Dosage: ORAL
     Route: 048
     Dates: end: 20050301
  2. LEVAQUIN [Suspect]
     Indication: RESPIRATORY DISORDER
     Dates: start: 20050601
  3. VALIUM [Concomitant]
  4. ALBUTEROL W/IPROTROPIUM [Concomitant]
  5. BACLOFEN [Concomitant]

REACTIONS (20)
  - APNOEA [None]
  - BLOOD PH DECREASED [None]
  - CARDIO-RESPIRATORY ARREST [None]
  - DEPRESSED LEVEL OF CONSCIOUSNESS [None]
  - DYSPNOEA [None]
  - HYPOTENSION [None]
  - OXYGEN SATURATION DECREASED [None]
  - PCO2 INCREASED [None]
  - PHARMACEUTICAL PRODUCT COMPLAINT [None]
  - PO2 INCREASED [None]
  - REFUSAL OF TREATMENT BY PATIENT [None]
  - RESPIRATORY DISORDER [None]
  - RESPIRATORY DISTRESS [None]
  - RESPIRATORY FAILURE [None]
  - RHONCHI [None]
  - TACHYPNOEA [None]
  - THERAPY NON-RESPONDER [None]
  - VENTRICULAR FIBRILLATION [None]
  - VENTRICULAR TACHYCARDIA [None]
  - WHEEZING [None]
